FAERS Safety Report 5374967-1 (Version None)
Quarter: 2007Q2

REPORT INFORMATION
  Report Type: 
  Country: None (occurrence: None)
  Receive Date: 20070627
  Receipt Date: 20070627
  Transmission Date: 20071010
  Serious: Yes (Hospitalization)
  Sender: FDA-Public Use
  Company Number: None

PATIENT
  Sex: Female
  Weight: 68.0396 kg

DRUGS (5)
  1. BEVACIZUMAB [Suspect]
     Indication: FALLOPIAN TUBE CANCER METASTATIC
     Dosage: ORAL
     Route: 048
     Dates: start: 20070101, end: 20070506
  2. TRAZODONE HCL [Concomitant]
  3. LORAZEPAM [Concomitant]
  4. ABILIFY [Concomitant]
  5. VESICARE [Concomitant]

REACTIONS (2)
  - BLOOD CREATININE INCREASED [None]
  - PROTEINURIA [None]
